FAERS Safety Report 5562847-8 (Version None)
Quarter: 2007Q4

REPORT INFORMATION
  Report Type: 
  Country: None (occurrence: None)
  Receive Date: 20071217
  Receipt Date: 20071206
  Transmission Date: 20080405
  Serious: Yes (Other)
  Sender: FDA-Public Use
  Company Number: GB-JNJFOC-20071202768

PATIENT
  Age: 71 Year
  Sex: Female
  Weight: 59 kg

DRUGS (5)
  1. REMICADE [Suspect]
     Indication: RHEUMATOID ARTHRITIS
     Route: 042
  2. ATENOLOL [Concomitant]
     Indication: HYPERTENSION
  3. METHOTREXATE [Concomitant]
     Indication: RHEUMATOID ARTHRITIS
     Route: 058
  4. RANITIDINE HCL [Concomitant]
     Indication: RHEUMATOID ARTHRITIS
     Route: 048
  5. FELODOPINE [Concomitant]
     Indication: HYPERTENSION
     Route: 048

REACTIONS (5)
  - BLISTER [None]
  - BRONCHOSPASM [None]
  - HYPOTENSION [None]
  - INFUSION RELATED REACTION [None]
  - URTICARIA [None]
